FAERS Safety Report 15700832 (Version 2)
Quarter: 2018Q4

REPORT INFORMATION
  Report Type: Spontaneous
  Country: US (occurrence: US)
  Receive Date: 20181207
  Receipt Date: 20181220
  Transmission Date: 20190205
  Serious: No
  Sender: FDA-Public Use
  Company Number: US-SA-2018SA322467

PATIENT
  Age: 66 Year
  Sex: Female

DRUGS (1)
  1. ASPERCREME HEAT [Suspect]
     Active Substance: MENTHOL

REACTIONS (3)
  - Application site irritation [Unknown]
  - Application site pain [Unknown]
  - Application site pruritus [Unknown]

NARRATIVE: CASE EVENT DATE: 20181119
